FAERS Safety Report 20675070 (Version 1)
Quarter: 2022Q2

REPORT INFORMATION
  Report Type: Spontaneous
  Country: GB (occurrence: GB)
  Receive Date: 20220405
  Receipt Date: 20220405
  Transmission Date: 20220721
  Serious: No
  Sender: FDA-Public Use
  Company Number: GB-GLAXOSMITHKLINE-GB2022EME059434

PATIENT

DRUGS (1)
  1. SOTROVIMAB [Suspect]
     Active Substance: SOTROVIMAB
     Indication: Product used for unknown indication
     Dosage: UNK

REACTIONS (6)
  - Chest pain [Unknown]
  - Epistaxis [Unknown]
  - Paraesthesia oral [Unknown]
  - Diarrhoea [Unknown]
  - Migraine [Unknown]
  - Pneumonitis [Unknown]
